FAERS Safety Report 8574448-8 (Version None)
Quarter: 2012Q3

REPORT INFORMATION
  Report Type: 
  Country: None (occurrence: None)
  Receive Date: 20120806
  Receipt Date: 20120109
  Transmission Date: 20120928
  Serious: Yes (Hospitalization)
  Sender: FDA-Public Use
  Company Number: US-ABBOTT-12P-163-0888406-00

PATIENT
  Age: 54 Year
  Sex: Male
  Weight: 76.272 kg

DRUGS (3)
  1. DEPAKOTE [Concomitant]
     Indication: BIPOLAR DISORDER
     Dosage: 1 PILL IN AM, 1 PILL AT LUNCH, 2 PILLS IN EVENING
     Route: 048
     Dates: end: 20111201
  2. ABILIFY [Suspect]
     Indication: BIPOLAR DISORDER
     Dates: start: 20111201
  3. DEPAKOTE ER [Suspect]
     Indication: BIPOLAR DISORDER
     Dosage: 500MG IN AM, AND 550MG AND 250MG IN PM
     Route: 048
     Dates: start: 20111201

REACTIONS (1)
  - TREMOR [None]
